FAERS Safety Report 11929795 (Version 1)
Quarter: 2016Q1

REPORT INFORMATION
  Report Type: Spontaneous
  Country: US (occurrence: US)
  Receive Date: 20160120
  Receipt Date: 20160120
  Transmission Date: 20160526
  Serious: Yes (Other)
  Sender: FDA-Public Use
  Company Number: US-AMGEN-USASP2016003981

PATIENT
  Age: 69 Year
  Sex: Male

DRUGS (4)
  1. NEULASTA [Suspect]
     Active Substance: PEGFILGRASTIM
     Indication: PROPHYLAXIS
     Dosage: UNK
     Route: 065
  2. BENADRYL [Concomitant]
     Active Substance: DIPHENHYDRAMINE HYDROCHLORIDE
     Indication: PREMEDICATION
     Dosage: UNK
  3. GEMZAR [Concomitant]
     Active Substance: GEMCITABINE HYDROCHLORIDE
     Indication: COLORECTAL CANCER RECURRENT
     Dosage: UNK, Q2WK
  4. ELOXATIN [Concomitant]
     Active Substance: OXALIPLATIN
     Indication: COLORECTAL CANCER RECURRENT
     Dosage: UNK, Q2WK

REACTIONS (3)
  - Device dislocation [Unknown]
  - Balance disorder [Unknown]
  - Fall [Unknown]
